FAERS Safety Report 14426998 (Version 3)
Quarter: 2018Q2

REPORT INFORMATION
  Report Type: Spontaneous
  Country: CO (occurrence: CO)
  Receive Date: 20180123
  Receipt Date: 20180406
  Transmission Date: 20180711
  Serious: Yes (Other)
  Sender: FDA-Public Use
  Company Number: CO-GEHC-2018CSU000315

PATIENT

DRUGS (1)
  1. OMNIPAQUE [Suspect]
     Active Substance: IOHEXOL
     Indication: PELVIC PAIN
     Dosage: 45 ML, SINGLE
     Route: 042
     Dates: start: 20171017, end: 20171017

REACTIONS (5)
  - Vertigo [Recovered/Resolved]
  - Hypothermia [Recovered/Resolved]
  - Rash maculo-papular [Recovered/Resolved]
  - Respiratory distress [Recovered/Resolved]
  - Nausea [Recovered/Resolved]

NARRATIVE: CASE EVENT DATE: 20171017
